FAERS Safety Report 19943425 (Version 1)
Quarter: 2021Q4

REPORT INFORMATION
  Report Type: Spontaneous
  Country: DE (occurrence: DE)
  Receive Date: 20211011
  Receipt Date: 20211011
  Transmission Date: 20220303
  Serious: Yes (Life-Threatening, Other)
  Sender: FDA-Public Use
  Company Number: DE-TAKEDA-2021TUS062075

PATIENT
  Age: 27 Year
  Sex: Male

DRUGS (1)
  1. LISDEXAMFETAMINE DIMESYLATE [Suspect]
     Active Substance: LISDEXAMFETAMINE DIMESYLATE
     Indication: Attention deficit hyperactivity disorder
     Dosage: 30 MILLIGRAM
     Route: 065

REACTIONS (3)
  - Psychotic disorder [Unknown]
  - Suspected suicide attempt [Unknown]
  - Hallucination [Unknown]

NARRATIVE: CASE EVENT DATE: 20210815
